FAERS Safety Report 22034899 (Version 1)
Quarter: 2023Q1

REPORT INFORMATION
  Report Type: Spontaneous
  Country: US (occurrence: None)
  Receive Date: 20230223
  Receipt Date: 20230223
  Transmission Date: 20230418
  Serious: Yes (Hospitalization)
  Sender: FDA-Public Use
  Company Number: None

PATIENT
  Age: 41 Year
  Sex: Female
  Weight: 135.17 kg

DRUGS (7)
  1. EMGALITY [Suspect]
     Active Substance: GALCANEZUMAB-GNLM
     Dosage: FREQUENCY : DAILY;?
     Dates: start: 20230127, end: 20230127
  2. DESCOVY [Concomitant]
  3. HYDROCHLOROTHIAZIDE [Concomitant]
  4. OMEPRAZOLE [Concomitant]
  5. TIVICAY [Concomitant]
  6. SUMATRIPTAN [Concomitant]
  7. TIZANIDINE [Concomitant]

REACTIONS (1)
  - Ophthalmic herpes zoster [None]

NARRATIVE: CASE EVENT DATE: 20230201
